FAERS Safety Report 9821875 (Version 2)
Quarter: 2014Q1

REPORT INFORMATION
  Report Type: Spontaneous
  Country: US (occurrence: None)
  Receive Date: 20140114
  Receipt Date: 20140122
  Transmission Date: 20141002
  Serious: Yes (Disabling, Other)
  Sender: FDA-Public Use
  Company Number: 1401-0017

PATIENT
  Age: 69 Year
  Sex: Female

DRUGS (1)
  1. EYELEA [Suspect]
     Indication: MACULAR DEGENERATION

REACTIONS (3)
  - Endophthalmitis [None]
  - Visual acuity reduced [None]
  - Staphylococcus test positive [None]
